FAERS Safety Report 4526753-X (Version None)
Quarter: 2004Q4

REPORT INFORMATION
  Report Type: 
  Country: None (occurrence: None)
  Receive Date: 20041213
  Receipt Date: 20041203
  Transmission Date: 20050328
  Serious: Yes (Disabling, Other)
  Sender: FDA-Public Use
  Company Number: 2004-01-1781

PATIENT
  Age: 17 Year
  Sex: Male

DRUGS (5)
  1. PEG-INTRON [Suspect]
     Indication: HEPATITIS C
     Dosage: 120 MCG QWK SUBCUTANEOUS
     Route: 058
     Dates: start: 20021219, end: 20031101
  2. REBETOL [Suspect]
     Indication: HEPATITIS C
     Dosage: 1000 MG QD ORAL
     Route: 048
     Dates: start: 20021219, end: 20031101
  3. PREVACID [Concomitant]
  4. CLARINEX [Concomitant]
  5. VERAPAMIL [Concomitant]

REACTIONS (13)
  - BLOOD CHOLESTEROL INCREASED [None]
  - BLOOD TRIGLYCERIDES INCREASED [None]
  - COGNITIVE DISORDER [None]
  - CORTISOL FREE URINE INCREASED [None]
  - DISTURBANCE IN ATTENTION [None]
  - FLAT AFFECT [None]
  - LIPOHYPERTROPHY [None]
  - MEMORY IMPAIRMENT [None]
  - OSTEOPENIA [None]
  - PERSONALITY CHANGE [None]
  - PITUITARY-DEPENDENT CUSHING'S SYNDROME [None]
  - SKIN STRIAE [None]
  - WEIGHT INCREASED [None]
